FAERS Safety Report 20354765 (Version 1)
Quarter: 2022Q1

REPORT INFORMATION
  Report Type: Spontaneous
  Country: US (occurrence: US)
  Receive Date: 20220120
  Receipt Date: 20220120
  Transmission Date: 20220423
  Serious: No
  Sender: FDA-Public Use
  Company Number: US-AVET LIFESCIENCES LTD-2022-AVET-000007

PATIENT

DRUGS (1)
  1. OXYBUTYNIN [Suspect]
     Active Substance: OXYBUTYNIN
     Indication: Incontinence
     Dosage: 25 MILLIGRAM, 5 TIMES A DAY
     Route: 048
     Dates: start: 2003

REACTIONS (1)
  - Drug ineffective [Unknown]
